FAERS Safety Report 9786504 (Version 4)
Quarter: 2014Q1

REPORT INFORMATION
  Report Type: Report from Study
  Country: FR (occurrence: FR)
  Receive Date: 20131227
  Receipt Date: 20140210
  Transmission Date: 20141002
  Serious: Yes (Hospitalization)
  Sender: FDA-Public Use
  Company Number: FR-ABBVIE-13P-056-1062139-00

PATIENT
  Age: 62 Year
  Sex: Male

DRUGS (2)
  1. HUMIRA [Suspect]
     Indication: CROHN^S DISEASE
     Dosage: INDUCTION: 160 MG (BASELINE) / 80 MG (WEEK 2)
     Route: 058
     Dates: start: 20090724, end: 20100320
  2. HUMIRA [Suspect]
     Route: 058
     Dates: start: 20120904

REACTIONS (1)
  - Short-bowel syndrome [Recovered/Resolved]
